FAERS Safety Report 23203936 (Version 1)
Quarter: 2023Q4

REPORT INFORMATION
  Report Type: Spontaneous
  Country: JP (occurrence: JP)
  Receive Date: 20231120
  Receipt Date: 20231120
  Transmission Date: 20240110
  Serious: No
  Sender: FDA-Public Use
  Company Number: JP-ALKEM LABORATORIES LIMITED-JP-ALKEM-2023-04685

PATIENT
  Age: 7 Decade
  Sex: Female

DRUGS (7)
  1. MINOCYCLINE [Suspect]
     Active Substance: MINOCYCLINE HYDROCHLORIDE
     Indication: Skin lesion
     Dosage: 100 MG/DAY
     Route: 065
  2. PANITUMUMAB [Concomitant]
     Active Substance: PANITUMUMAB
     Indication: Rectal cancer
     Dosage: UNK
     Route: 065
  3. PANITUMUMAB [Concomitant]
     Active Substance: PANITUMUMAB
     Indication: Metastases to liver
  4. IRINOTECAN [Concomitant]
     Active Substance: IRINOTECAN
     Indication: Rectal cancer
     Dosage: UNK
     Route: 065
  5. IRINOTECAN [Concomitant]
     Active Substance: IRINOTECAN
     Indication: Metastases to liver
  6. FLUOROURACIL [Concomitant]
     Active Substance: FLUOROURACIL
     Indication: Rectal cancer
     Dosage: UNK
     Route: 065
  7. FLUOROURACIL [Concomitant]
     Active Substance: FLUOROURACIL
     Indication: Metastases to liver

REACTIONS (2)
  - Trichoglossia [Recovering/Resolving]
  - Skin hyperpigmentation [Recovering/Resolving]
